FAERS Safety Report 6284597-5 (Version None)
Quarter: 2009Q3

REPORT INFORMATION
  Report Type: 
  Country: None (occurrence: None)
  Receive Date: 20090727
  Receipt Date: 20090701
  Transmission Date: 20100115
  Serious: No
  Sender: FDA-Public Use
  Company Number: US-ALEXION-A200900542

PATIENT
  Sex: Female

DRUGS (5)
  1. SOLIRIS [Suspect]
     Indication: PAROXYSMAL NOCTURNAL HAEMOGLOBINURIA
     Dosage: 600 MG, QW
     Route: 042
     Dates: start: 20081016, end: 20081106
  2. SOLIRIS [Suspect]
     Dosage: 900 MG, Q2W
     Route: 042
     Dates: start: 20081113, end: 20080101
  3. SOLIRIS [Suspect]
     Dosage: 900 MG, Q19D
     Route: 042
     Dates: start: 20081201
  4. SOLIRIS [Suspect]
     Dosage: 600 MG, QW
     Route: 042
     Dates: start: 20090128, end: 20090201
  5. SOLIRIS [Suspect]
     Dosage: UNK
     Route: 042

REACTIONS (2)
  - BLOOD COUNT ABNORMAL [None]
  - MALAISE [None]
